FAERS Safety Report 10020143 (Version 1)
Quarter: 2014Q1

REPORT INFORMATION
  Report Type: Report from Study
  Country: DE (occurrence: DE)
  Receive Date: 20140319
  Receipt Date: 20140319
  Transmission Date: 20141002
  Serious: Yes (Other)
  Sender: FDA-Public Use
  Company Number: DE-ROCHE-1364731

PATIENT
  Sex: Male

DRUGS (3)
  1. RANIBIZUMAB [Suspect]
     Indication: VISUAL IMPAIRMENT
     Route: 050
     Dates: start: 20120308
  2. RANIBIZUMAB [Suspect]
     Indication: DIABETIC RETINAL OEDEMA
     Route: 050
     Dates: start: 20130118
  3. RANIBIZUMAB [Suspect]
     Route: 050
     Dates: end: 20130416

REACTIONS (4)
  - Glaucoma [Not Recovered/Not Resolved]
  - Retinal aneurysm [Unknown]
  - Retinal haemorrhage [Unknown]
  - Retinal oedema [Not Recovered/Not Resolved]
